FAERS Safety Report 13836311 (Version 2)
Quarter: 2020Q4

REPORT INFORMATION
  Report Type: Report from Study
  Country: CO (occurrence: CO)
  Receive Date: 20170804
  Receipt Date: 20201020
  Transmission Date: 20210113
  Serious: Yes (Hospitalization, Other)
  Sender: FDA-Public Use
  Company Number: PHHY2016CO075036

PATIENT
  Age: 56 Year
  Sex: Female
  Weight: 51 kg

DRUGS (6)
  1. EXJADE [Suspect]
     Active Substance: DEFERASIROX
     Indication: THALASSAEMIA
     Dosage: 500 MG, QD
     Route: 048
     Dates: start: 20110101
  2. EXJADE [Suspect]
     Active Substance: DEFERASIROX
     Dosage: 1 DF, QD (2 TABLETS OF 500MG DAILY)
     Route: 048
     Dates: start: 2016
  3. DANAZOL. [Concomitant]
     Active Substance: DANAZOL
     Indication: PRODUCT USED FOR UNKNOWN INDICATION
     Dosage: UNK
     Route: 065
  4. ACETAMINOPHEN. [Concomitant]
     Active Substance: ACETAMINOPHEN
     Indication: PRODUCT USED FOR UNKNOWN INDICATION
     Dosage: UNK
     Route: 065
  5. EXJADE [Suspect]
     Active Substance: DEFERASIROX
     Dosage: 1 DF, QD (1 TABLET DAILY)
     Route: 048
  6. JADENU [Suspect]
     Active Substance: DEFERASIROX
     Indication: ANAEMIA MEGALOBLASTIC
     Dosage: 2 DF (5 YEARS AGO)
     Route: 065

REACTIONS (15)
  - Dysstasia [Unknown]
  - Headache [Unknown]
  - Trismus [Unknown]
  - Blood iron decreased [Unknown]
  - Blood iron increased [Unknown]
  - Syncope [Unknown]
  - Pain in jaw [Unknown]
  - Product use in unapproved indication [Unknown]
  - Diarrhoea [Unknown]
  - Muscle spasms [Unknown]
  - Asphyxia [Unknown]
  - Tinnitus [Unknown]
  - Haemoglobin decreased [Unknown]
  - Constipation [Unknown]
  - Product dispensing error [Unknown]

NARRATIVE: CASE EVENT DATE: 20170212
